FAERS Safety Report 11627782 (Version 1)
Quarter: 2015Q4

REPORT INFORMATION
  Report Type: Spontaneous
  Country: US (occurrence: None)
  Receive Date: 20151013
  Receipt Date: 20151013
  Transmission Date: 20160304
  Serious: Yes (Disabling)
  Sender: FDA-Public Use
  Company Number: None

PATIENT
  Age: 61 Year
  Sex: Female
  Weight: 58.97 kg

DRUGS (9)
  1. NOVOLOG [Concomitant]
     Active Substance: INSULIN ASPART
  2. LANTUS [Concomitant]
     Active Substance: INSULIN GLARGINE
  3. RAMIPRIL. [Concomitant]
     Active Substance: RAMIPRIL
  4. PREDNISONE. [Concomitant]
     Active Substance: PREDNISONE
  5. METANX [Concomitant]
     Active Substance: LEVOMEFOLATE CALCIUM\METHYLCOBALAMIN\PYRIDOXAL PHOSPHATE ANHYDROUS
  6. RECLAST [Suspect]
     Active Substance: ZOLEDRONIC ACID
     Indication: OSTEOPOROSIS
     Dates: start: 20121123, end: 20130210
  7. HYDROXYCHLOROQUINE [Concomitant]
     Active Substance: HYDROXYCHLOROQUINE
  8. GABAPENTIN. [Concomitant]
     Active Substance: GABAPENTIN
  9. LODOS ASPRIN [Concomitant]

REACTIONS (12)
  - Bone pain [None]
  - Aphasia [None]
  - Fibromyalgia [None]
  - Gait disturbance [None]
  - Amnesia [None]
  - Thinking abnormal [None]
  - Rheumatoid arthritis [None]
  - Pain [None]
  - Respiratory disorder [None]
  - Arthralgia [None]
  - Myalgia [None]
  - Muscle rigidity [None]

NARRATIVE: CASE EVENT DATE: 20121123
